FAERS Safety Report 9670066 (Version 1)
Quarter: 2013Q4

REPORT INFORMATION
  Report Type: Spontaneous
  Country: US (occurrence: US)
  Receive Date: 20131105
  Receipt Date: 20131105
  Transmission Date: 20140711
  Serious: No
  Sender: FDA-Public Use
  Company Number: US-BAXTER-2013BAX042471

PATIENT
  Age: 72 Year
  Sex: Male

DRUGS (11)
  1. GAMMAGARD LIQUID [Suspect]
     Indication: IMMUNE THROMBOCYTOPENIC PURPURA
     Dosage: A FEW TIMES A YEAR
     Route: 042
     Dates: start: 2009, end: 2010
  2. GAMMAGARD LIQUID [Suspect]
     Route: 042
     Dates: start: 2010, end: 2010
  3. GAMMAGARD LIQUID [Suspect]
     Route: 042
     Dates: start: 2011, end: 2011
  4. GAMMAGARD LIQUID [Suspect]
     Route: 042
     Dates: start: 2012, end: 2012
  5. PREDNISONE [Concomitant]
     Indication: PRODUCT USED FOR UNKNOWN INDICATION
     Route: 048
  6. PREDNISONE [Concomitant]
     Route: 048
  7. POTASSIUM CHLORIDE [Concomitant]
     Indication: PRODUCT USED FOR UNKNOWN INDICATION
     Dosage: 10 MEQ
     Route: 048
  8. MULTI-VITAMIN [Concomitant]
     Indication: PRODUCT USED FOR UNKNOWN INDICATION
     Route: 048
  9. PROBIOTICS SUPPLEMENT [Concomitant]
     Indication: PRODUCT USED FOR UNKNOWN INDICATION
     Route: 048
  10. SELENIUM SUPPLEMENT [Concomitant]
     Indication: PRODUCT USED FOR UNKNOWN INDICATION
     Route: 048
  11. FINASTERIDE [Concomitant]
     Indication: PRODUCT USED FOR UNKNOWN INDICATION
     Route: 048

REACTIONS (2)
  - Underdose [Recovered/Resolved]
  - Haematoma [Recovered/Resolved]
